FAERS Safety Report 10629490 (Version 1)
Quarter: 2014Q4

REPORT INFORMATION
  Report Type: Spontaneous
  Country: US (occurrence: US)
  Receive Date: 20141205
  Receipt Date: 20141205
  Transmission Date: 20150529
  Serious: No
  Sender: FDA-Public Use
  Company Number: US-BRISTOL-MYERS SQUIBB COMPANY-21192372

PATIENT

DRUGS (1)
  1. SUSTIVA TABS [Suspect]
     Active Substance: EFAVIRENZ
     Route: 050

REACTIONS (2)
  - Dysphagia [Unknown]
  - Gastrointestinal tube insertion [Unknown]
